FAERS Safety Report 8357268-9 (Version None)
Quarter: 2012Q2

REPORT INFORMATION
  Report Type: 
  Country: None (occurrence: None)
  Receive Date: 20120514
  Receipt Date: 20120509
  Transmission Date: 20120825
  Serious: Yes (Hospitalization)
  Sender: FDA-Public Use
  Company Number: PHHO2012IT001727

PATIENT
  Sex: Male
  Weight: 90 kg

DRUGS (6)
  1. ALLOPURINOL [Concomitant]
     Indication: PROPHYLAXIS
     Dosage: 300 MG, DAILY
     Route: 048
     Dates: start: 20101001
  2. RAMIPRIL [Concomitant]
     Indication: HYPERTENSION
     Dosage: 30 MG, DAILY
     Route: 048
     Dates: start: 20101001
  3. TASIGNA [Suspect]
     Dosage: NO TREATMENT RECEIVED
     Dates: start: 20120321, end: 20120322
  4. TASIGNA [Suspect]
     Dosage: UNK
     Route: 048
     Dates: start: 20120323
  5. METFORMIN HCL [Concomitant]
     Indication: DIABETES MELLITUS
     Dosage: 155 MG, DAILY
     Route: 048
     Dates: start: 20101001
  6. TASIGNA [Suspect]
     Indication: CHRONIC MYELOID LEUKAEMIA
     Dosage: 600 MG, DAILY
     Route: 048
     Dates: start: 20110119, end: 20120320

REACTIONS (1)
  - GANGRENE [None]
